FAERS Safety Report 21136308 (Version 1)
Quarter: 2022Q3

REPORT INFORMATION
  Report Type: Report from Study
  Country: TH (occurrence: TH)
  Receive Date: 20220727
  Receipt Date: 20220727
  Transmission Date: 20221027
  Serious: Yes (Death, Hospitalization, Other)
  Sender: FDA-Public Use
  Company Number: TH-PFIZER INC-202200989125

PATIENT
  Age: 1 Year
  Sex: Female
  Weight: 7 kg

DRUGS (1)
  1. HEPARIN SODIUM [Suspect]
     Active Substance: HEPARIN SODIUM
     Indication: Anticoagulant therapy
     Dosage: 600 IU

REACTIONS (9)
  - Incorrect dose administered [Fatal]
  - Pulmonary haemorrhage [Fatal]
  - Haemoptysis [Fatal]
  - Cardiac failure congestive [Fatal]
  - Hypotension [Fatal]
  - Dyspnoea [Fatal]
  - Cardiac arrest [Fatal]
  - Pneumonia bacterial [Fatal]
  - Metabolic acidosis [Fatal]
